FAERS Safety Report 15713798 (Version 1)
Quarter: 2018Q4

REPORT INFORMATION
  Report Type: Spontaneous
  Country: US (occurrence: US)
  Receive Date: 20181212
  Receipt Date: 20181212
  Transmission Date: 20190205
  Serious: No
  Sender: FDA-Public Use
  Company Number: None

PATIENT
  Sex: Male

DRUGS (2)
  1. GRANISETRON [Suspect]
     Active Substance: GRANISETRON
     Indication: BRAIN NEOPLASM MALIGNANT
     Route: 048
     Dates: start: 20181121
  2. TEMOZOLMIDE [Suspect]
     Active Substance: TEMOZOLOMIDE
     Indication: BRAIN NEOPLASM MALIGNANT
     Dosage: ?          OTHER FREQUENCY:5DAYS/28DAYS;?
     Route: 048
     Dates: start: 20181121

REACTIONS (2)
  - Nausea [None]
  - Fatigue [None]
